FAERS Safety Report 5552411-9 (Version None)
Quarter: 2007Q4

REPORT INFORMATION
  Report Type: 
  Country: None (occurrence: None)
  Receive Date: 20071212
  Receipt Date: 20071207
  Transmission Date: 20080405
  Serious: Yes (Death, Hospitalization, Other)
  Sender: FDA-Public Use
  Company Number: DE-ABBOTT-05P-062-0316158-00

PATIENT
  Sex: Female

DRUGS (1)
  1. HUMIRA [Suspect]
     Indication: RHEUMATOID ARTHRITIS
     Route: 058
     Dates: start: 20040826, end: 20041101

REACTIONS (16)
  - ANAEMIA [None]
  - BILE DUCT STONE [None]
  - CHOLANGITIS [None]
  - CHOLESTASIS [None]
  - DIVERTICULITIS [None]
  - DUODENAL ULCER [None]
  - DUODENAL ULCER HAEMORRHAGE [None]
  - FEMALE GENITAL TRACT FISTULA [None]
  - GENERAL PHYSICAL HEALTH DETERIORATION [None]
  - HAEMORRHAGE [None]
  - IMPAIRED HEALING [None]
  - MULTI-ORGAN FAILURE [None]
  - PANCREATITIS [None]
  - PULMONARY EMBOLISM [None]
  - RESPIRATORY FAILURE [None]
  - WOUND ABSCESS [None]
